FAERS Safety Report 6663113-X (Version None)
Quarter: 2010Q1

REPORT INFORMATION
  Report Type: 
  Country: None (occurrence: None)
  Receive Date: 20100323
  Receipt Date: 20100118
  Transmission Date: 20100710
  Serious: No
  Sender: FDA-Public Use
  Company Number: 100125-0000095

PATIENT
  Age: 49 Year
  Sex: Female

DRUGS (6)
  1. SABRIL [Suspect]
     Indication: CONVULSION
     Dosage: 500 MG;QD;PO
     Route: 048
     Dates: start: 20100115
  2. BENZEL [Concomitant]
  3. LAMICTAL [Concomitant]
  4. DILANTIN [Concomitant]
  5. KLONOPIN [Concomitant]
  6. PENTASA [Concomitant]

REACTIONS (1)
  - DIZZINESS [None]
